FAERS Safety Report 4946497-X (Version None)
Quarter: 2006Q1

REPORT INFORMATION
  Report Type: 
  Country: None (occurrence: None)
  Receive Date: 20060314
  Receipt Date: 20060301
  Transmission Date: 20060701
  Serious: Yes (Other)
  Sender: FDA-Public Use
  Company Number: USA-2006-0023744

PATIENT
  Sex: Female

DRUGS (3)
  1. MS CONTIN [Suspect]
     Indication: BACK PAIN
     Dosage: 30 MG, BID, ORAL
     Route: 048
     Dates: start: 20060228, end: 20060228
  2. PERCOCET [Concomitant]
  3. LORTAB [Concomitant]

REACTIONS (4)
  - FLUSHING [None]
  - HYPERSENSITIVITY [None]
  - SWOLLEN TONGUE [None]
  - THERAPY NON-RESPONDER [None]
